FAERS Safety Report 6129413-7 (Version None)
Quarter: 2009Q1

REPORT INFORMATION
  Report Type: 
  Country: None (occurrence: None)
  Receive Date: 20090324
  Receipt Date: 20090316
  Transmission Date: 20090719
  Serious: Yes (Hospitalization, Other)
  Sender: FDA-Public Use
  Company Number: PHHY2009LU09228

PATIENT
  Sex: Male

DRUGS (8)
  1. RASILEZ [Suspect]
     Indication: CARDIAC FAILURE
     Dosage: UNK
     Dates: start: 20090222, end: 20090307
  2. SINTROM [Suspect]
     Dosage: UNK
     Dates: start: 20090226, end: 20090307
  3. RENITEC                                 /NET/ [Suspect]
     Dosage: UNK
     Dates: end: 20090301
  4. CLEXANE [Concomitant]
     Dosage: UNK
     Dates: start: 20090221, end: 20090201
  5. LASIX [Concomitant]
  6. BISOPROLOL FUMARATE [Concomitant]
     Dosage: 2.5 MG, UNK
  7. DEPONIT [Concomitant]
     Dosage: UNK
     Dates: start: 20090221
  8. LORAZEPAM [Concomitant]

REACTIONS (6)
  - BIOPSY LIVER [None]
  - BLOOD BILIRUBIN INCREASED [None]
  - ENDOSCOPIC RETROGRADE CHOLANGIOPANCREATOGRAPHY [None]
  - HEPATOTOXICITY [None]
  - JAUNDICE [None]
  - YELLOW SKIN [None]
